FAERS Safety Report 7720552-3 (Version None)
Quarter: 2011Q3

REPORT INFORMATION
  Report Type: 
  Country: None (occurrence: None)
  Receive Date: 20110831
  Receipt Date: 20110831
  Transmission Date: 20111222
  Serious: Yes (Other)
  Sender: FDA-Public Use
  Company Number: None

PATIENT
  Age: 70 Year
  Sex: Female
  Weight: 51.255 kg

DRUGS (3)
  1. CYMBALTA [Suspect]
     Indication: ANXIETY
     Dosage: 1
     Route: 048
     Dates: start: 20110501, end: 20110801
  2. CYMBALTA [Suspect]
     Indication: DEPRESSION
     Dosage: 1
     Route: 048
     Dates: start: 20110501, end: 20110801
  3. CYMBALTA [Suspect]
     Indication: BACK PAIN
     Dosage: 1
     Route: 048
     Dates: start: 20110501, end: 20110801

REACTIONS (5)
  - AMNESIA [None]
  - DISORIENTATION [None]
  - ATTENTION DEFICIT/HYPERACTIVITY DISORDER [None]
  - CONFUSIONAL STATE [None]
  - DISTURBANCE IN ATTENTION [None]
